FAERS Safety Report 9120324 (Version 1)
Quarter: 2013Q1

REPORT INFORMATION
  Report Type: Spontaneous
  Country: FR (occurrence: FR)
  Receive Date: 20130226
  Receipt Date: 20130226
  Transmission Date: 20140127
  Serious: Yes (Life-Threatening, Hospitalization)
  Sender: FDA-Public Use
  Company Number: FR-PFIZER INC-2013047964

PATIENT
  Age: 59 Year
  Sex: Male

DRUGS (10)
  1. FLUOROURACIL [Suspect]
     Indication: ORAL NEOPLASM
     Dosage: 1400 MG, CYCLIC
     Route: 041
     Dates: start: 20121203, end: 20121208
  2. LYRICA [Suspect]
     Indication: PAIN
     Dosage: UNK
     Route: 048
     Dates: start: 20121203, end: 20121215
  3. ONDANSETRON HCL [Suspect]
     Dosage: 8 MG, SINGLE
     Route: 042
     Dates: start: 20121203, end: 20121203
  4. CISPLATIN [Suspect]
     Indication: ORAL NEOPLASM
     Dosage: 138 MG, CYCLIC
     Route: 041
     Dates: start: 20121203, end: 20121203
  5. TAXOTERE [Suspect]
     Indication: ORAL NEOPLASM
     Dosage: 136 MG, CYCLIC
     Route: 041
     Dates: start: 20121203, end: 20121203
  6. EMEND [Suspect]
     Dosage: 125 MG, SINGLE
     Route: 048
     Dates: start: 20121203, end: 20121203
  7. DEXAMETHASONE [Suspect]
     Dosage: 12 MG, SINGLE
     Route: 042
     Dates: start: 20121203, end: 20121203
  8. SKENAN [Suspect]
     Indication: PAIN
     Dosage: 60 MG, 2X/DAY
     Route: 048
     Dates: start: 20121203, end: 20121215
  9. ACTISKENAN [Suspect]
     Indication: PAIN
     Dosage: 10 MG, 6 TIMES DAILY
     Route: 048
     Dates: start: 20121203, end: 20121215
  10. ACTISKENAN [Suspect]
     Dosage: 5 MG, 6 TIMES DAILY
     Route: 048
     Dates: start: 20121203, end: 20121215

REACTIONS (7)
  - Septic shock [Recovered/Resolved]
  - Lung disorder [Recovered/Resolved with Sequelae]
  - Renal failure acute [Recovered/Resolved]
  - Hepatocellular injury [Recovered/Resolved]
  - Diarrhoea [Recovered/Resolved]
  - Vomiting [Recovered/Resolved]
  - Acute respiratory distress syndrome [Recovered/Resolved]
